FAERS Safety Report 7575419-0 (Version None)
Quarter: 2011Q2

REPORT INFORMATION
  Report Type: 
  Country: None (occurrence: None)
  Receive Date: 20110627
  Receipt Date: 20110617
  Transmission Date: 20111010
  Serious: Yes (Other)
  Sender: FDA-Public Use
  Company Number: SG-B.I. PHARMACEUTICALS,INC./RIDGEFIELD-2011-DE-03666GD

PATIENT
  Age: 73 Year
  Sex: Female

DRUGS (3)
  1. ROFECOXIB [Suspect]
  2. MELOXICAM [Suspect]
  3. QUININE SULFATE [Suspect]
     Indication: MUSCLE SPASMS
     Dosage: 300 MG

REACTIONS (2)
  - THROMBOCYTOPENIA [None]
  - HAEMATOMA [None]
